FAERS Safety Report 15806395 (Version 2)
Quarter: 2019Q1

REPORT INFORMATION
  Report Type: Spontaneous
  Country: US (occurrence: US)
  Receive Date: 20190110
  Receipt Date: 20190116
  Transmission Date: 20190417
  Serious: No
  Sender: FDA-Public Use
  Company Number: US-PFIZER INC-2019010009

PATIENT
  Age: 69 Year
  Sex: Female
  Weight: 111.1 kg

DRUGS (3)
  1. LYRICA [Suspect]
     Active Substance: PREGABALIN
     Indication: PAIN IN EXTREMITY
     Dosage: 100 MG, 1X/DAY [TWO AT NIGHT]
     Dates: start: 201807
  2. LYRICA [Suspect]
     Active Substance: PREGABALIN
     Indication: NEUROPATHY PERIPHERAL
  3. JANUMET [Concomitant]
     Active Substance: METFORMIN HYDROCHLORIDE\SITAGLIPTIN PHOSPHATE
     Dosage: UNK [METFORMIN HYDROCHLORIDE: 1000 MG, SITAGLIPTIN PHOSPHATE: 50MG]

REACTIONS (2)
  - Drug ineffective [Unknown]
  - Somnolence [Recovered/Resolved]
